FAERS Safety Report 26188725 (Version 1)
Quarter: 2025Q4

REPORT INFORMATION
  Report Type: Report from Study
  Country: AU (occurrence: AU)
  Receive Date: 20251222
  Receipt Date: 20251222
  Transmission Date: 20260118
  Serious: Yes (Other)
  Sender: ABBVIE
  Company Number: AU-ABBVIE-6600338

PATIENT
  Age: 64 Year
  Sex: Male

DRUGS (1)
  1. VYALEV [Suspect]
     Active Substance: FOSCARBIDOPA\FOSLEVODOPA
     Indication: Parkinson^s disease
     Route: 058
     Dates: start: 20250919

REACTIONS (2)
  - Neoplasm malignant [Unknown]
  - Product lot number issue [Unknown]

NARRATIVE: CASE EVENT DATE: 20250101
